FAERS Safety Report 9530870 (Version 1)
Quarter: 2013Q3

REPORT INFORMATION
  Report Type: Spontaneous
  Country: US (occurrence: US)
  Receive Date: 20130918
  Receipt Date: 20130918
  Transmission Date: 20140515
  Serious: No
  Sender: FDA-Public Use
  Company Number: US-009507513-1309USA006030

PATIENT
  Sex: Male

DRUGS (2)
  1. CLARITIN [Suspect]
     Indication: NASAL DISCOMFORT
     Dosage: UNK, ONCE
     Route: 048
     Dates: start: 20130905
  2. CLARITIN [Suspect]
     Indication: THROAT IRRITATION

REACTIONS (1)
  - Drug ineffective [Unknown]
